FAERS Safety Report 9909542 (Version 1)
Quarter: 2014Q1

REPORT INFORMATION
  Report Type: Report from Study
  Country: IL (occurrence: IL)
  Receive Date: 20140219
  Receipt Date: 20140219
  Transmission Date: 20141002
  Serious: Yes (Hospitalization, Other)
  Sender: FDA-Public Use
  Company Number: IL-PFIZER INC-2014037619

PATIENT
  Age: 67 Year
  Sex: Male
  Weight: 82 kg

DRUGS (19)
  1. EPLERENONE [Suspect]
     Indication: CARDIAC FAILURE CHRONIC
     Dosage: UNK
     Route: 048
     Dates: start: 20131001
  2. EPLERENONE [Suspect]
     Dosage: UNK
     Route: 048
     Dates: end: 20131012
  3. FUSID [Concomitant]
     Dosage: UNK
     Dates: start: 2003
  4. PROCOR [Concomitant]
     Dosage: UNK
     Dates: start: 2003
  5. CARDILOC [Concomitant]
     Dosage: UNK
     Dates: start: 2003
  6. LOSARDEX [Concomitant]
     Dosage: UNK
     Dates: start: 200808
  7. DIGOXIN [Concomitant]
     Dosage: UNK
     Dates: start: 2007
  8. FAMOTIDIN [Concomitant]
     Dosage: UNK
     Dates: start: 2011
  9. ALDACTONE [Concomitant]
     Dosage: UNK
     Dates: start: 2003, end: 20130929
  10. ALLORIL [Concomitant]
     Dosage: UNK
     Dates: start: 2012
  11. LIPITOR [Concomitant]
     Dosage: UNK
     Dates: start: 2003
  12. COUMADIN [Concomitant]
     Dosage: UNK
     Dates: start: 2003
  13. AEROVENT [Concomitant]
     Dosage: UNK
     Dates: start: 201112
  14. SODIUM CHLORIDE [Concomitant]
     Dosage: UNK
  15. SPIRIVA HANDIHALER [Concomitant]
     Dosage: UNK
     Dates: start: 201112
  16. SERETIDE DISKUS [Concomitant]
     Dosage: UNK
     Dates: start: 2011
  17. RULID [Concomitant]
  18. ZINNAT [Concomitant]
     Dosage: UNK
     Dates: start: 20131003
  19. FLIXOTIDE [Concomitant]
     Dosage: UNK
     Dates: start: 20131003, end: 20131005

REACTIONS (2)
  - Chronic obstructive pulmonary disease [Recovered/Resolved]
  - Cardiac failure chronic [Recovered/Resolved]
